FAERS Safety Report 4651993-9 (Version None)
Quarter: 2005Q2

REPORT INFORMATION
  Report Type: 
  Country: None (occurrence: None)
  Receive Date: 20050504
  Receipt Date: 20050420
  Transmission Date: 20051028
  Serious: No
  Sender: FDA-Public Use
  Company Number: 200511210JP

PATIENT
  Age: 39 Year
  Sex: Female
  Weight: 47 kg

DRUGS (6)
  1. ALLEGRA [Suspect]
     Indication: RHINITIS ALLERGIC
     Dosage: DOSE: ONCE 1 TABLET
     Route: 048
     Dates: start: 20050411
  2. ONON [Concomitant]
     Indication: RHINITIS ALLERGIC
     Dosage: DOSE: ONCE 2 CAPSULES
     Route: 048
     Dates: start: 20050411
  3. FLOMOX [Concomitant]
     Indication: LARYNGOPHARYNGITIS
     Dosage: DOSE: ONCE 3 TABLETS
     Route: 048
     Dates: start: 20050411
  4. PONOPHEN [Concomitant]
     Indication: LARYNGOPHARYNGITIS
     Dosage: DOSE: ONCE 3 TABLETS
     Route: 048
     Dates: start: 20050411
  5. SELBEX [Concomitant]
     Indication: GASTRITIS
     Dosage: DOSE: ONCE 3 TABLETS
     Route: 048
     Dates: start: 20050411
  6. SELBEX [Concomitant]
     Indication: PROPHYLAXIS
     Dosage: DOSE: ONCE 3 TABLETS
     Route: 048
     Dates: start: 20050411

REACTIONS (5)
  - COLD SWEAT [None]
  - FEELING COLD [None]
  - GAIT DISTURBANCE [None]
  - HYPERSENSITIVITY [None]
  - NAUSEA [None]
